FAERS Safety Report 6173683-6 (Version None)
Quarter: 2009Q2

REPORT INFORMATION
  Report Type: 
  Country: None (occurrence: None)
  Receive Date: 20090429
  Receipt Date: 20090429
  Transmission Date: 20091009
  Serious: Yes (Other)
  Sender: FDA-Public Use
  Company Number: None

PATIENT
  Sex: Male
  Weight: 77.1115 kg

DRUGS (1)
  1. DIGOXIN [Suspect]
     Indication: CARDIAC OPERATION
     Dosage: 1 TABLET DAILY 1X DAILY MOUTH
     Dates: start: 20090225, end: 20090418

REACTIONS (1)
  - HYPOTENSION [None]
